FAERS Safety Report 11178449 (Version 2)
Quarter: 2015Q3

REPORT INFORMATION
  Report Type: Report from Study
  Country: PE (occurrence: PE)
  Receive Date: 20150610
  Receipt Date: 20150710
  Transmission Date: 20151125
  Serious: Yes (Death)
  Sender: FDA-Public Use
  Company Number: PE-ASTELLAS-2015US019943

PATIENT
  Age: 55 Year
  Sex: Male

DRUGS (1)
  1. ERLOTINIB [Suspect]
     Active Substance: ERLOTINIB
     Indication: NON-SMALL CELL LUNG CANCER
     Dosage: 150 MG, 1 IN 1D
     Route: 048
     Dates: start: 20140808, end: 20141107

REACTIONS (1)
  - Death [Fatal]

NARRATIVE: CASE EVENT DATE: 201502
